FAERS Safety Report 17001739 (Version 2)
Quarter: 2019Q4

REPORT INFORMATION
  Report Type: Spontaneous
  Country: MX (occurrence: MX)
  Receive Date: 20191106
  Receipt Date: 20191217
  Transmission Date: 20200122
  Serious: Yes (Hospitalization)
  Sender: FDA-Public Use
  Company Number: MX-BEH-2019108771

PATIENT
  Age: 41 Year
  Sex: Female
  Weight: 58 kg

DRUGS (10)
  1. HIGLOBIN [Suspect]
     Active Substance: HUMAN IMMUNOGLOBULIN G
     Indication: CHRONIC INFLAMMATORY DEMYELINATING POLYRADICULONEUROPATHY
     Dosage: 115 GRAM/INITIAL DOSE WAS 2 GRAM PER KILOGRAM DIVIDED INTO 5 DAYS
     Route: 042
     Dates: start: 20191023, end: 20191027
  2. HIGLOBIN [Suspect]
     Active Substance: HUMAN IMMUNOGLOBULIN G
     Dosage: 11 VIALS OF 10 GRAM
     Route: 042
  3. ONDANSETRON [Suspect]
     Active Substance: ONDANSETRON
     Indication: NAUSEA
     Dosage: 4 MILLIGRAM/2 DOSES
     Route: 042
     Dates: start: 20191026, end: 20191028
  4. HIGLOBIN [Suspect]
     Active Substance: HUMAN IMMUNOGLOBULIN G
     Dosage: 1 GRAM/KILOGRAM, INFUSION RATE AT 0.3 MILLILITER/KILOGRAM/HOUR
     Route: 065
     Dates: start: 20191125, end: 20191125
  5. ENOXAPARIN [Suspect]
     Active Substance: ENOXAPARIN
     Indication: THROMBOSIS PROPHYLAXIS
     Dosage: 60 MILLIGRAM, QD
     Route: 058
     Dates: start: 20191026, end: 20191028
  6. HIGLOBIN [Suspect]
     Active Substance: HUMAN IMMUNOGLOBULIN G
     Dosage: 1 VIAL OF 5 GRAM
     Route: 042
  7. METHYLPREDNISOLONE. [Suspect]
     Active Substance: METHYLPREDNISOLONE
     Indication: PREMEDICATION
     Dosage: 100 MILLIGRAM/2 DOSES
     Route: 042
     Dates: start: 20191026, end: 20191027
  8. IBUPROFEN. [Suspect]
     Active Substance: IBUPROFEN
     Indication: HEADACHE
     Dosage: 400 MILLIGRAM, TID [/8 HOURS]
     Route: 048
     Dates: start: 20191026, end: 20191027
  9. PREGABALIN. [Suspect]
     Active Substance: PREGABALIN
     Indication: CHRONIC INFLAMMATORY DEMYELINATING POLYRADICULONEUROPATHY
     Dosage: 75 MILLIGRAM, QD
     Route: 048
     Dates: start: 20191023
  10. OMEPRAZOLE. [Suspect]
     Active Substance: OMEPRAZOLE
     Indication: GASTRITIS PROPHYLAXIS
     Dosage: 40 MILLIGRAM, QD
     Route: 042
     Dates: start: 20191026, end: 20191028

REACTIONS (7)
  - Blood lactate dehydrogenase increased [Recovered/Resolved]
  - Nausea [Recovered/Resolved]
  - Hepatitis [Recovered/Resolved]
  - Transaminases increased [Recovered/Resolved]
  - Fatigue [Recovered/Resolved]
  - Hepatic pain [Recovered/Resolved]
  - Blood alkaline phosphatase increased [Recovered/Resolved]

NARRATIVE: CASE EVENT DATE: 20191027
